FAERS Safety Report 6373332-8 (Version None)
Quarter: 2009Q3

REPORT INFORMATION
  Report Type: 
  Country: None (occurrence: None)
  Receive Date: 20090924
  Receipt Date: 20090408
  Transmission Date: 20100115
  Serious: No
  Sender: FDA-Public Use
  Company Number: US-ASTRAZENECA-2009UW08794

PATIENT
  Age: 52 Year
  Sex: Male
  Weight: 102.1 kg

DRUGS (5)
  1. SEROQUEL XR [Suspect]
     Route: 048
     Dates: start: 20090301
  2. WELLBUTRIN [Concomitant]
     Indication: DEPRESSION
  3. BENICAR [Concomitant]
     Indication: HYPERTENSION
  4. REGLAN [Concomitant]
     Indication: ABDOMINAL DISCOMFORT
  5. HALOPERIDOL [Concomitant]

REACTIONS (6)
  - DEPRESSION [None]
  - DIZZINESS [None]
  - HALLUCINATION [None]
  - NASAL CONGESTION [None]
  - PARANOIA [None]
  - SINUSITIS [None]
